FAERS Safety Report 12187111 (Version 3)
Quarter: 2016Q3

REPORT INFORMATION
  Report Type: Spontaneous
  Country: US (occurrence: US)
  Receive Date: 20160317
  Receipt Date: 20160805
  Transmission Date: 20161109
  Serious: Yes (Hospitalization)
  Sender: FDA-Public Use
  Company Number: US-PFIZER INC-2016109018

PATIENT
  Age: 53 Year
  Sex: Female

DRUGS (6)
  1. TOPIRAMATE. [Concomitant]
     Active Substance: TOPIRAMATE
     Dosage: 50 MG, 3X/DAY
  2. ETODOLAC. [Concomitant]
     Active Substance: ETODOLAC
     Dosage: 400 MG, 3X/DAY
  3. TIZANIDINE. [Concomitant]
     Active Substance: TIZANIDINE
     Dosage: 4 MG, 2X/DAY
  4. ETODOLAC. [Concomitant]
     Active Substance: ETODOLAC
     Indication: ARTHRITIS
     Dosage: 400 MG, 4X/DAY
  5. XELJANZ [Suspect]
     Active Substance: TOFACITINIB CITRATE
     Indication: RHEUMATOID ARTHRITIS
     Dosage: 5 MG, 2X/DAY
     Dates: start: 20151231, end: 20160325
  6. DIVALPROEX [Concomitant]
     Active Substance: DIVALPROEX SODIUM
     Dosage: 50 MG, 2X/DAY

REACTIONS (7)
  - Pruritus [Not Recovered/Not Resolved]
  - Dysuria [Recovered/Resolved]
  - Seborrhoeic dermatitis [Not Recovered/Not Resolved]
  - Eczema [Unknown]
  - Dermatitis [Recovered/Resolved]
  - Fungal infection [Recovered/Resolved]
  - Drug ineffective [Not Recovered/Not Resolved]

NARRATIVE: CASE EVENT DATE: 201601
